FAERS Safety Report 11507929 (Version 1)
Quarter: 2015Q3

REPORT INFORMATION
  Report Type: Spontaneous
  Country: US (occurrence: US)
  Receive Date: 20150903
  Receipt Date: 20150903
  Transmission Date: 20151125
  Serious: No
  Sender: FDA-Public Use
  Company Number: US-ELI_LILLY_AND_COMPANY-US200906001231

PATIENT
  Age: 82 Year
  Sex: Female

DRUGS (6)
  1. NORVASC [Concomitant]
     Active Substance: AMLODIPINE BESYLATE
     Indication: HYPERTENSION
  2. COREG [Concomitant]
     Active Substance: CARVEDILOL
  3. LANTUS [Concomitant]
     Active Substance: INSULIN GLARGINE
  4. MAXZIDE [Concomitant]
     Active Substance: HYDROCHLOROTHIAZIDE\TRIAMTERENE
     Indication: HYPERTENSION
  5. DIOVAN [Concomitant]
     Active Substance: VALSARTAN
     Indication: HYPERTENSION
  6. HUMALOG [Suspect]
     Active Substance: INSULIN LISPRO

REACTIONS (9)
  - Cataract [Not Recovered/Not Resolved]
  - Blood glucose decreased [Recovered/Resolved]
  - Decreased appetite [Unknown]
  - Injection site bruising [Recovering/Resolving]
  - Hypotension [Not Recovered/Not Resolved]
  - Injection site pain [Unknown]
  - Feeling abnormal [Unknown]
  - Hypertension [Not Recovered/Not Resolved]
  - Heart rate increased [Recovered/Resolved]

NARRATIVE: CASE EVENT DATE: 2007
